FAERS Safety Report 5126864-4 (Version None)
Quarter: 2006Q3

REPORT INFORMATION
  Report Type: 
  Country: None (occurrence: None)
  Receive Date: 20060825
  Receipt Date: 20060519
  Transmission Date: 20061208
  Serious: No
  Sender: FDA-Public Use
  Company Number: 2006US003124

PATIENT
  Age: 44 Year
  Sex: Male
  Weight: 88 kg

DRUGS (6)
  1. ALOXI [Suspect]
     Indication: PROPHYLAXIS OF NAUSEA AND VOMITING
     Dosage: 0.25 MG, SINGLE, INTRAVENOUS
     Route: 042
     Dates: start: 20060505, end: 20060505
  2. DEXAMETHASONE TAB [Suspect]
     Indication: PROPHYLAXIS OF NAUSEA AND VOMITING
     Dosage: 20 MG, SINGLE, ORAL
     Route: 048
     Dates: start: 20060505, end: 20060505
  3. DTIC-DOME [Concomitant]
  4. ADRIAMYCIN /00330901/ (DOXORUBICIN) [Concomitant]
  5. BLEOMYCIN [Concomitant]
  6. VELBAN [Concomitant]

REACTIONS (2)
  - DRUG EFFECT DECREASED [None]
  - VOMITING [None]
